FAERS Safety Report 8916282 (Version 1)
Quarter: 2012Q4

REPORT INFORMATION
  Report Type: 
  Country: PK (occurrence: PK)
  Receive Date: 20121120
  Receipt Date: 20121120
  Transmission Date: 20130627
  Serious: Yes (Death, Hospitalization)
  Sender: FDA-Public Use
  Company Number: PHHY2012PK104858

PATIENT
  Age: 71 Year
  Sex: Male
  Weight: 100 kg

DRUGS (1)
  1. EXELON PATCH [Suspect]
     Indication: DEMENTIA ALZHEIMER^S TYPE
     Dosage: 4.6 mg, daily
     Route: 062
     Dates: start: 20121016, end: 20121020

REACTIONS (1)
  - Diabetes mellitus [Fatal]
